FAERS Safety Report 4534679-0 (Version None)
Quarter: 2004Q4

REPORT INFORMATION
  Report Type: 
  Country: None (occurrence: None)
  Receive Date: 20041214
  Receipt Date: 20041102
  Transmission Date: 20050328
  Serious: No
  Sender: FDA-Public Use
  Company Number: 2004238526US

PATIENT
  Sex: Female
  Weight: 72.6 kg

DRUGS (15)
  1. BEXTRA [Suspect]
     Indication: RHEUMATOID ARTHRITIS
     Dosage: 20 MG, QD, ORAL
     Route: 048
     Dates: start: 20041001, end: 20041025
  2. SYNTHROID [Concomitant]
  3. NORVASC [Concomitant]
  4. DIOVAN HCT (VALSARTAN) [Concomitant]
  5. LIPITOR [Concomitant]
  6. OGEN [Concomitant]
  7. NEXIUM [Concomitant]
  8. ADVAIR DISKUS 100/50 [Concomitant]
  9. ALBUTEROL [Concomitant]
  10. COMBIVENT [Concomitant]
  11. OXYGEN (OXYGEN) [Concomitant]
  12. TEMAZEPAM [Concomitant]
  13. MULTIVITAMINS (ERGOCALCIFEROL, RETINOL, PANTHENOL) [Concomitant]
  14. VITAMIN C [Concomitant]
  15. CALCIUM GLUCONATE [Concomitant]

REACTIONS (3)
  - GLOSSODYNIA [None]
  - ORAL MUCOSAL BLISTERING [None]
  - ORAL PAIN [None]
